FAERS Safety Report 13301895 (Version 1)
Quarter: 2017Q1

REPORT INFORMATION
  Report Type: Spontaneous
  Country: US (occurrence: US)
  Receive Date: 20170307
  Receipt Date: 20170307
  Transmission Date: 20170428
  Serious: No
  Sender: FDA-Public Use
  Company Number: US-GLAXOSMITHKLINE-US2016196631

PATIENT
  Age: 69 Year
  Sex: Female

DRUGS (1)
  1. SIMPLY RIGHT NICOTINE [Suspect]
     Active Substance: NICOTINE
     Indication: SMOKING CESSATION THERAPY
     Dosage: 21 MG, UNK
     Dates: end: 20161225

REACTIONS (3)
  - Nicotine dependence [Unknown]
  - Application site erythema [Recovering/Resolving]
  - Application site pruritus [Not Recovered/Not Resolved]
